FAERS Safety Report 7041179-5 (Version None)
Quarter: 2010Q4

REPORT INFORMATION
  Report Type: 
  Country: None (occurrence: None)
  Receive Date: 20101013
  Receipt Date: 20100928
  Transmission Date: 20110411
  Serious: Yes (Hospitalization, Other)
  Sender: FDA-Public Use
  Company Number: DE-CELGENEUS-062-50794-10071752

PATIENT
  Age: 76 Year
  Sex: Male
  Weight: 85 kg

DRUGS (5)
  1. VIDAZA [Suspect]
     Route: 058
     Dates: start: 20100201, end: 20100205
  2. RED BLOOD CELLS [Concomitant]
     Indication: HAEMOCHROMATOSIS
     Route: 051
  3. ZIENAM [Concomitant]
     Indication: PRODUCT USED FOR UNKNOWN INDICATION
     Route: 065
     Dates: start: 20100201
  4. CEFTAZIDIME [Concomitant]
     Indication: NEUTROPENIA
     Route: 065
     Dates: start: 20100201
  5. GENTAMICIN [Concomitant]
     Indication: NEUTROPENIA
     Route: 065
     Dates: start: 20100201

REACTIONS (4)
  - ACUTE MYOCARDIAL INFARCTION [None]
  - BURSITIS [None]
  - PYODERMA GANGRENOSUM [None]
  - SEPSIS [None]
